FAERS Safety Report 9407437 (Version 1)
Quarter: 2013Q3

REPORT INFORMATION
  Report Type: Spontaneous
  Country: GR (occurrence: GR)
  Receive Date: 20130718
  Receipt Date: 20130718
  Transmission Date: 20140515
  Serious: Yes (Hospitalization)
  Sender: FDA-Public Use
  Company Number: GR-ABBOTT-13P-066-1119336-00

PATIENT
  Age: 49 Year
  Sex: Male

DRUGS (2)
  1. HUMIRA [Suspect]
     Indication: PSORIASIS
     Route: 058
     Dates: start: 20121108, end: 201306
  2. CIPRALEX [Concomitant]
     Indication: ANXIETY DISORDER

REACTIONS (2)
  - Auricular perichondritis [Recovered/Resolved]
  - Localised oedema [Recovered/Resolved]
